FAERS Safety Report 10973349 (Version 1)
Quarter: 2015Q1

REPORT INFORMATION
  Report Type: Spontaneous
  Country: None (occurrence: None)
  Receive Date: 20150331
  Receipt Date: 20150331
  Transmission Date: 20150721
  Serious: Yes (Hospitalization)
  Sender: FDA-Public Use
  Company Number: None

PATIENT
  Age: 54 Year
  Sex: Female
  Weight: 90.7 kg

DRUGS (6)
  1. LEVAQUIN [Concomitant]
     Active Substance: LEVOFLOXACIN
  2. ALLOPURINOL. [Suspect]
     Active Substance: ALLOPURINOL
  3. ACYCLOVIR. [Concomitant]
     Active Substance: ACYCLOVIR
  4. DIFLUCAN [Concomitant]
     Active Substance: FLUCONAZOLE
  5. VANCO [Suspect]
     Active Substance: VANCOMYCIN
  6. CEFEPIME [Suspect]
     Active Substance: CEFEPIME\CEFEPIME HYDROCHLORIDE

REACTIONS (4)
  - Perivascular dermatitis [None]
  - Rash pruritic [None]
  - Petechiae [None]
  - Eczema [None]

NARRATIVE: CASE EVENT DATE: 20150313
